FAERS Safety Report 16218689 (Version 2)
Quarter: 2019Q2

REPORT INFORMATION
  Report Type: Report from Study
  Country: ZA (occurrence: ZA)
  Receive Date: 20190419
  Receipt Date: 20190423
  Transmission Date: 20190711
  Serious: Yes (Life-Threatening)
  Sender: FDA-Public Use
  Company Number: ZA-SA-2018SA319668

PATIENT
  Age: 68 Year
  Sex: Male

DRUGS (7)
  1. INSULIN GLARGINE [Suspect]
     Active Substance: INSULIN GLARGINE
     Dosage: AT BREAKFAST 25 UNITS AND BEDTIME 22 UNITS, TID
     Dates: start: 20190107
  2. PREXUM [Concomitant]
     Active Substance: PERINDOPRIL ERBUMINE
     Dosage: 10 MG, QD, BEFORE BREAKFAST
     Dates: start: 20190107
  3. GLUCOPHAGE [Concomitant]
     Active Substance: METFORMIN HYDROCHLORIDE
     Dosage: 1000 MG, BID, 1000 MG AFTER BREAKFAST AND 1000 MG AFTER SUPPER
     Dates: start: 20100101
  4. TOUJEO [Suspect]
     Active Substance: INSULIN GLARGINE
     Dosage: UNK UNK, UNK
  5. ECOTRIN [Concomitant]
     Active Substance: ASPIRIN
     Dosage: 81 MG, QD, BEFORE BREAKFAST
     Dates: start: 20180107
  6. ASPAVOR [Concomitant]
     Active Substance: ATORVASTATIN
     Dosage: 40 MG, QD, BEFORE BREAKFAST
     Dates: start: 20190107
  7. HUMALOG [Concomitant]
     Active Substance: INSULIN LISPRO
     Dosage: 15 U, QD, BEFORE SUPPER
     Dates: start: 20081115

REACTIONS (8)
  - Asthenia [Not Recovered/Not Resolved]
  - Hunger [Not Recovered/Not Resolved]
  - Dizziness [Not Recovered/Not Resolved]
  - Inappropriate schedule of product administration [Unknown]
  - Glycosylated haemoglobin increased [Unknown]
  - Abdominal pain upper [Not Recovered/Not Resolved]
  - Bronchitis [Unknown]
  - Unevaluable event [Not Recovered/Not Resolved]

NARRATIVE: CASE EVENT DATE: 20181119
